FAERS Safety Report 8407484-2 (Version None)
Quarter: 2012Q2

REPORT INFORMATION
  Report Type: 
  Country: None (occurrence: None)
  Receive Date: 20120604
  Receipt Date: 20120530
  Transmission Date: 20120825
  Serious: No
  Sender: FDA-Public Use
  Company Number: US-PFIZER INC-2012051628

PATIENT
  Sex: Female
  Weight: 83.9 kg

DRUGS (2)
  1. PRISTIQ [Suspect]
     Indication: DEPRESSION
     Dosage: 50 MG, 1X/DAY
     Route: 048
     Dates: start: 20120224
  2. XANAX [Concomitant]
     Dosage: 0.5 MG, UNK

REACTIONS (4)
  - GAIT DISTURBANCE [None]
  - HALLUCINATION [None]
  - ABDOMINAL DISCOMFORT [None]
  - NONSPECIFIC REACTION [None]
